FAERS Safety Report 7577060-2 (Version None)
Quarter: 2011Q2

REPORT INFORMATION
  Report Type: 
  Country: None (occurrence: None)
  Receive Date: 20110628
  Receipt Date: 20110624
  Transmission Date: 20111010
  Serious: Yes (Hospitalization)
  Sender: FDA-Public Use
  Company Number: US-AMGEN-USASP2011031315

PATIENT
  Age: 72 Year
  Sex: Female
  Weight: 57.143 kg

DRUGS (13)
  1. ZETIA [Concomitant]
     Dosage: 10 MG, UNK
     Route: 048
  2. COUMADIN [Concomitant]
     Dosage: 3 MG, UNK
     Route: 048
  3. OMEPRAZOLE [Concomitant]
     Dosage: 20 MG, UNK
     Route: 048
  4. NPLATE [Suspect]
     Indication: IDIOPATHIC THROMBOCYTOPENIC PURPURA
     Dosage: 50 A?G, Q2WK
     Route: 058
     Dates: start: 20090618
  5. GLYBURIDE [Concomitant]
     Dosage: 2.5 MG, UNK
     Route: 048
  6. METOPROLOL SUCCINATE [Concomitant]
     Dosage: 50 MG, UNK
     Route: 048
  7. MINERALS NOS [Concomitant]
     Dosage: UNK
  8. XALATAN [Concomitant]
     Route: 047
  9. LASIX [Concomitant]
     Dosage: 40 MG, UNK
  10. ALENDRONATE SODIUM [Concomitant]
     Dosage: 70 MG, UNK
     Route: 048
  11. LISINOPRIL [Concomitant]
     Dosage: 10 MG, UNK
  12. LIPITOR [Concomitant]
     Dosage: 80 MG, UNK
     Route: 048
  13. IVIGLOB-EX [Concomitant]

REACTIONS (1)
  - CARDIAC DISORDER [None]
